FAERS Safety Report 8235533-3 (Version None)
Quarter: 2012Q1

REPORT INFORMATION
  Report Type: 
  Country: None (occurrence: None)
  Receive Date: 20120322
  Receipt Date: 20120313
  Transmission Date: 20120608
  Serious: Yes (Disabling, Other)
  Sender: FDA-Public Use
  Company Number: AUR-APL-2012-01389

PATIENT
  Age: 29 Year
  Sex: Female
  Weight: 73.7 kg

DRUGS (1)
  1. METFORMIN HCL [Suspect]
     Indication: GESTATIONAL DIABETES
     Dosage: 1000 MG (500 MG, 2 IN 1 D), ORAL
     Route: 048
     Dates: start: 20120217, end: 20120220

REACTIONS (6)
  - UNEVALUABLE EVENT [None]
  - ORGAN FAILURE [None]
  - MATERNAL EXPOSURE DURING PREGNANCY [None]
  - JOINT SWELLING [None]
  - SWOLLEN TONGUE [None]
  - MALAISE [None]
